FAERS Safety Report 6324963-2 (Version None)
Quarter: 2009Q3

REPORT INFORMATION
  Report Type: 
  Country: None (occurrence: None)
  Receive Date: 20090824
  Receipt Date: 20090619
  Transmission Date: 20100115
  Serious: No
  Sender: FDA-Public Use
  Company Number: US-ABBOTT-09P-163-0580885-00

PATIENT
  Sex: Female
  Weight: 63.56 kg

DRUGS (10)
  1. NIASPAN [Suspect]
     Indication: BLOOD TRIGLYCERIDES INCREASED
     Dates: start: 20090529
  2. NIASPAN [Suspect]
     Indication: BLOOD CHOLESTEROL INCREASED
  3. LISINOPRIL [Concomitant]
     Indication: DRUG USE FOR UNKNOWN INDICATION
  4. SIMVASTATIN [Concomitant]
     Indication: DRUG USE FOR UNKNOWN INDICATION
  5. GLUCOSAMINE + CHONDROITIN [Concomitant]
     Indication: DRUG USE FOR UNKNOWN INDICATION
  6. FISH OIL [Concomitant]
     Indication: DRUG USE FOR UNKNOWN INDICATION
  7. MAGNESIUM [Concomitant]
     Indication: DRUG USE FOR UNKNOWN INDICATION
  8. MULTI-VITAMIN [Concomitant]
     Indication: DRUG USE FOR UNKNOWN INDICATION
  9. CALCIUM WITH VITAMIN D [Concomitant]
     Indication: DRUG USE FOR UNKNOWN INDICATION
  10. CHROMIUM PICOLINATE [Concomitant]
     Indication: DRUG USE FOR UNKNOWN INDICATION

REACTIONS (6)
  - DIZZINESS [None]
  - EYE INJURY [None]
  - FALL [None]
  - FLUSHING [None]
  - FOOT FRACTURE [None]
  - NAUSEA [None]
